FAERS Safety Report 24091037 (Version 1)
Quarter: 2024Q3

REPORT INFORMATION
  Report Type: Spontaneous
  Country: JP (occurrence: JP)
  Receive Date: 20240715
  Receipt Date: 20240715
  Transmission Date: 20241016
  Serious: No
  Sender: PIERRE FABRE MEDICAMENT
  Company Number: JP-PFM-2021-06357

PATIENT
  Age: 9 Month
  Sex: Female

DRUGS (1)
  1. PROPRANOLOL [Suspect]
     Active Substance: PROPRANOLOL HYDROCHLORIDE
     Indication: Haemangioma congenital
     Route: 065

REACTIONS (3)
  - Drug ineffective [Unknown]
  - Product administered to patient of inappropriate age [Unknown]
  - Off label use [Unknown]
